FAERS Safety Report 4787914-8 (Version None)
Quarter: 2005Q3

REPORT INFORMATION
  Report Type: 
  Country: None (occurrence: None)
  Receive Date: 20050926
  Receipt Date: 20050628
  Transmission Date: 20060218
  Serious: Yes (Other)
  Sender: FDA-Public Use
  Company Number: 215171

PATIENT
  Age: 64 Year
  Sex: Male

DRUGS (3)
  1. AVASTIN [Suspect]
     Indication: COLORECTAL CANCER METASTATIC
  2. FLUOROURACIL [Concomitant]
  3. IRINOTECAN HCL [Concomitant]

REACTIONS (1)
  - RECTAL HAEMORRHAGE [None]
